FAERS Safety Report 24815515 (Version 1)
Quarter: 2025Q1

REPORT INFORMATION
  Report Type: Spontaneous
  Country: US (occurrence: US)
  Receive Date: 20250107
  Receipt Date: 20250107
  Transmission Date: 20250409
  Serious: No
  Sender: SAGENT PHARMACEUTICALS
  Company Number: US-SAGENT PHARMACEUTICALS-2024SAG000104

PATIENT

DRUGS (4)
  1. PROPOFOL [Suspect]
     Active Substance: PROPOFOL
     Indication: Oesophagogastroduodenoscopy
     Route: 042
  2. PROPOFOL [Suspect]
     Active Substance: PROPOFOL
     Route: 042
  3. MIDAZOLAM [Concomitant]
     Active Substance: MIDAZOLAM
     Indication: Oesophagogastroduodenoscopy
     Route: 042
  4. DROPERIDOL [Concomitant]
     Active Substance: DROPERIDOL
     Indication: Oesophagogastroduodenoscopy
     Route: 042

REACTIONS (2)
  - Agitation [Unknown]
  - Therapeutic response decreased [Unknown]
